FAERS Safety Report 4421653-8 (Version None)
Quarter: 2004Q3

REPORT INFORMATION
  Report Type: 
  Country: None (occurrence: None)
  Receive Date: 20040809
  Receipt Date: 20040809
  Transmission Date: 20050211
  Serious: Yes (Hospitalization)
  Sender: FDA-Public Use
  Company Number: None

PATIENT
  Age: 28 Year
  Sex: Female
  Weight: 55 kg

DRUGS (3)
  1. ZOSYN [Suspect]
     Indication: CONDITION AGGRAVATED
     Dosage: INCREASED
     Dates: start: 20040721, end: 20040727
  2. ZOSYN [Suspect]
     Indication: CYSTIC FIBROSIS
     Dosage: INCREASED
     Dates: start: 20040721, end: 20040727
  3. ZOSYN [Suspect]

REACTIONS (2)
  - CONVULSION [None]
  - ROAD TRAFFIC ACCIDENT [None]
